FAERS Safety Report 20866298 (Version 1)
Quarter: 2022Q2

REPORT INFORMATION
  Report Type: Spontaneous
  Country: US (occurrence: None)
  Receive Date: 20220523
  Receipt Date: 20220523
  Transmission Date: 20220720
  Serious: Yes (Disabling)
  Sender: FDA-Public Use
  Company Number: None

PATIENT
  Age: 5 Year
  Sex: Male

DRUGS (1)
  1. MONTELUKAST [Suspect]
     Active Substance: MONTELUKAST SODIUM
     Indication: Multiple allergies
     Dosage: FREQUENCY : DAILY;?
     Route: 048

REACTIONS (10)
  - Dyskinesia [None]
  - Tic [None]
  - Anxiety [None]
  - Panic attack [None]
  - Anger [None]
  - Depressed mood [None]
  - Fatigue [None]
  - Social problem [None]
  - Self esteem decreased [None]
  - Drug monitoring procedure not performed [None]

NARRATIVE: CASE EVENT DATE: 20210215
